FAERS Safety Report 15016982 (Version 1)
Quarter: 2018Q2

REPORT INFORMATION
  Report Type: Spontaneous
  Country: US (occurrence: US)
  Receive Date: 20180615
  Receipt Date: 20180615
  Transmission Date: 20180711
  Serious: Yes (Other)
  Sender: FDA-Public Use
  Company Number: US-ELI_LILLY_AND_COMPANY-US201806001556

PATIENT
  Sex: Female

DRUGS (6)
  1. HUMALOG [Suspect]
     Active Substance: INSULIN LISPRO
     Indication: TYPE 2 DIABETES MELLITUS
     Dosage: SLIDING SCALE AS NEEDED WITH BREAKFAST AND DINNER
     Route: 058
     Dates: start: 2015
  2. HUMALOG [Suspect]
     Active Substance: INSULIN LISPRO
     Dosage: SLIDING SCALE AS NEEDED WITH BREAKFAST AND DINNER
     Route: 058
  3. HUMALOG [Suspect]
     Active Substance: INSULIN LISPRO
     Dosage: SLIDING SCALE AS NEEDED WITH BREAKFAST AND DINNER
     Route: 058
  4. HUMALOG [Suspect]
     Active Substance: INSULIN LISPRO
     Dosage: SLIDING SCALE AS NEEDED WITH BREAKFAST AND DINNER
     Route: 058
  5. PREDNISONE. [Suspect]
     Active Substance: PREDNISONE
     Indication: PRODUCT USED FOR UNKNOWN INDICATION
     Dosage: UNK, UNKNOWN
     Route: 065
  6. MARIJUANA [Concomitant]
     Active Substance: CANNABIS SATIVA SUBSP. INDICA TOP
     Indication: NEUROPATHY PERIPHERAL

REACTIONS (6)
  - Blood glucose increased [Recovered/Resolved]
  - Splenomegaly [Not Recovered/Not Resolved]
  - Lymphoma [Not Recovered/Not Resolved]
  - Injection site bruising [Recovered/Resolved]
  - Weight decreased [Recovering/Resolving]
  - Blood glucose increased [Not Recovered/Not Resolved]
